FAERS Safety Report 8363127-8 (Version None)
Quarter: 2012Q2

REPORT INFORMATION
  Report Type: 
  Country: None (occurrence: None)
  Receive Date: 20120514
  Receipt Date: 20120504
  Transmission Date: 20120825
  Serious: Yes (Disabling, Other)
  Sender: FDA-Public Use
  Company Number: GER/UKI/12/0024208

PATIENT
  Age: 16 Year
  Sex: Male

DRUGS (1)
  1. SERTRALINE HYDROCHLORIDE [Suspect]
     Indication: OBSESSIVE-COMPULSIVE DISORDER
     Dosage: 200 MG, 1 D, ORAL
     Route: 048
     Dates: start: 20091201

REACTIONS (3)
  - OBSESSIVE-COMPULSIVE DISORDER [None]
  - CONDITION AGGRAVATED [None]
  - DRUG INEFFECTIVE [None]
